FAERS Safety Report 5047270-7 (Version None)
Quarter: 2006Q3

REPORT INFORMATION
  Report Type: 
  Country: None (occurrence: None)
  Receive Date: 20060703
  Receipt Date: 20060620
  Transmission Date: 20061208
  Serious: Yes (Disabling)
  Sender: FDA-Public Use
  Company Number: ABILP-06-0256

PATIENT
  Age: 62 Year
  Sex: Female

DRUGS (5)
  1. ABRAXANE [Suspect]
     Indication: BREAST CANCER
     Dosage: 430 MG DAY/EVERY 3 WEEKS/18 DOSES (EVERY 3 WEEKS)
     Route: 041
     Dates: start: 20050602
  2. ATENOLOL [Concomitant]
  3. EFFEXOR [Concomitant]
  4. BEXTRA [Concomitant]
  5. AMBIEN [Concomitant]

REACTIONS (1)
  - FACIAL PALSY [None]
